FAERS Safety Report 5794661-2 (Version None)
Quarter: 2008Q2

REPORT INFORMATION
  Report Type: 
  Country: None (occurrence: None)
  Receive Date: 20080627
  Receipt Date: 20080627
  Transmission Date: 20081010
  Serious: No
  Sender: FDA-Public Use
  Company Number: None

PATIENT
  Age: 49 Year
  Sex: Female
  Weight: 73 kg

DRUGS (2)
  1. ISOVUE-370 [Suspect]
     Indication: COMPUTERISED TOMOGRAM
     Dosage: 90 ML X1
     Dates: start: 20080608
  2. ISOVUE-370 [Suspect]
     Indication: SCAN WITH CONTRAST
     Dosage: 90 ML X1
     Dates: start: 20080608

REACTIONS (2)
  - FEELING HOT [None]
  - URTICARIA [None]
